FAERS Safety Report 22249214 (Version 1)
Quarter: 2023Q2

REPORT INFORMATION
  Report Type: Spontaneous
  Country: US (occurrence: None)
  Receive Date: 20230421
  Receipt Date: 20230421
  Transmission Date: 20230722
  Serious: No
  Sender: FDA-Public Use
  Company Number: None

PATIENT
  Age: 72 Year
  Sex: Female
  Weight: 87.5 kg

DRUGS (13)
  1. INLYTA [Suspect]
     Active Substance: AXITINIB
     Indication: Renal cancer
     Dosage: FREQUENCY : TWICE A DAY;?
     Route: 048
  2. CENTRUM SILVER [Concomitant]
  3. CITALOPRAM [Concomitant]
  4. COCUNUT OIL [Concomitant]
  5. FARXIGA [Concomitant]
  6. GABAPENTIN [Concomitant]
  7. JANUVIA [Concomitant]
  8. LOSARTAN [Concomitant]
     Active Substance: LOSARTAN
  9. METOPROLOL [Concomitant]
  10. OMEPRAZOLE [Concomitant]
  11. ROSUVASTATIN [Concomitant]
  12. TRAMADOL [Concomitant]
  13. TYLENOL [Concomitant]

REACTIONS (6)
  - Pain in extremity [None]
  - Therapy change [None]
  - Arthralgia [None]
  - Pain in extremity [None]
  - Gait disturbance [None]
  - Malaise [None]
